FAERS Safety Report 9711651 (Version 1)
Quarter: 2013Q4

REPORT INFORMATION
  Report Type: Spontaneous
  Country: GB (occurrence: GB)
  Receive Date: 20131126
  Receipt Date: 20131126
  Transmission Date: 20140711
  Serious: Yes (Disabling)
  Sender: FDA-Public Use
  Company Number: GB-009507513-1311GBR009467

PATIENT
  Age: 2 Decade
  Sex: Female
  Weight: 76.2 kg

DRUGS (5)
  1. ELOCON [Suspect]
     Indication: DERMATITIS ATOPIC
     Route: 061
  2. EUMOVATE [Suspect]
     Indication: DERMATITIS ATOPIC
     Route: 061
  3. HYDROCORTISONE [Suspect]
     Indication: DERMATITIS ATOPIC
     Dosage: UNK
     Route: 061
     Dates: start: 19930307
  4. HYDROXYZINE [Concomitant]
  5. SERTRALINE HYDROCHLORIDE [Concomitant]

REACTIONS (2)
  - Drug dependence [Not Recovered/Not Resolved]
  - Eczema [Not Recovered/Not Resolved]
